FAERS Safety Report 10151759 (Version 1)
Quarter: 2014Q2

REPORT INFORMATION
  Report Type: Report from Study
  Country: CN (occurrence: CN)
  Receive Date: 20140505
  Receipt Date: 20140505
  Transmission Date: 20141212
  Serious: Yes (Other)
  Sender: FDA-Public Use
  Company Number: CN-ROCHE-1390205

PATIENT
  Sex: 0

DRUGS (12)
  1. MYCOPHENOLATE MOFETIL [Suspect]
     Indication: PROPHYLAXIS AGAINST TRANSPLANT REJECTION
     Route: 065
  2. DACLIZUMAB [Suspect]
     Indication: PROPHYLAXIS AGAINST TRANSPLANT REJECTION
     Route: 065
  3. CYCLOSPORINE A [Suspect]
     Indication: PROPHYLAXIS AGAINST TRANSPLANT REJECTION
     Route: 065
  4. MIZORIBINE [Suspect]
     Indication: PROPHYLAXIS AGAINST TRANSPLANT REJECTION
     Route: 065
  5. METHYLPREDNISOLONE [Suspect]
     Indication: PROPHYLAXIS AGAINST TRANSPLANT REJECTION
     Route: 065
  6. METHYLPREDNISOLONE [Suspect]
     Route: 065
  7. BASILIXIMAB [Suspect]
     Indication: PROPHYLAXIS AGAINST TRANSPLANT REJECTION
     Route: 065
  8. PREDNISONE [Suspect]
     Indication: PROPHYLAXIS AGAINST TRANSPLANT REJECTION
     Route: 048
  9. PREDNISONE [Suspect]
     Dosage: DOSE REDUCED WITHIN 1 MONTH AND THEN MAITAINED
     Route: 065
  10. TACROLIMUS [Suspect]
     Indication: PROPHYLAXIS AGAINST TRANSPLANT REJECTION
     Route: 065
  11. TACROLIMUS [Suspect]
     Dosage: DOSE REDUCED
     Route: 065
  12. AZATHIOPRINE [Suspect]
     Indication: PROPHYLAXIS AGAINST TRANSPLANT REJECTION
     Route: 065

REACTIONS (6)
  - Transitional cell carcinoma [Unknown]
  - Hepatic cancer [Unknown]
  - Lung neoplasm malignant [Unknown]
  - Gastric cancer [Unknown]
  - Skin cancer [Unknown]
  - Nasopharyngeal cancer [Unknown]
